FAERS Safety Report 7883763-2 (Version None)
Quarter: 2011Q4

REPORT INFORMATION
  Report Type: 
  Country: None (occurrence: None)
  Receive Date: 20111102
  Receipt Date: 20111024
  Transmission Date: 20120403
  Serious: Yes (Hospitalization)
  Sender: FDA-Public Use
  Company Number: KP-ASTRAZENECA-2011SE31805

PATIENT
  Age: 25669 Day
  Sex: Male

DRUGS (8)
  1. ATORVASTATIN [Concomitant]
     Indication: HYPERCHOLESTEROLAEMIA
     Route: 048
  2. PLAVIX [Suspect]
     Indication: CORONARY ARTERY DISEASE
     Route: 048
     Dates: start: 20110428, end: 20110520
  3. LOSARTAN POTASSIUM [Concomitant]
     Indication: HYPERTENSION
     Route: 048
  4. RANITIDINE [Concomitant]
     Indication: GASTRITIS
     Route: 048
  5. NEBIVOLOL HCL [Concomitant]
     Indication: MYOCARDIAL INFARCTION
     Route: 048
     Dates: start: 20110331
  6. NEBIVOLOL HCL [Concomitant]
     Indication: HYPERTENSION
     Route: 048
     Dates: start: 20110331
  7. PLAVIX [Suspect]
     Route: 048
     Dates: start: 20110601
  8. ASPIRIN [Concomitant]
     Route: 048

REACTIONS (1)
  - GASTRIC ULCER [None]
